FAERS Safety Report 25469158 (Version 2)
Quarter: 2025Q3

REPORT INFORMATION
  Report Type: Spontaneous
  Country: US (occurrence: US)
  Receive Date: 20250623
  Receipt Date: 20250704
  Transmission Date: 20251020
  Serious: Yes (Other)
  Sender: AMGEN
  Company Number: US-AMGEN-USASP2025119280

PATIENT
  Age: 45 Year
  Sex: Female
  Weight: 58.06 kg

DRUGS (14)
  1. PROLIA [Suspect]
     Active Substance: DENOSUMAB
     Indication: Osteoporosis
     Dosage: 60 MILLIGRAM, Q6MO
     Route: 058
     Dates: start: 20190121
  2. XGEVA [Suspect]
     Active Substance: DENOSUMAB
     Indication: Osteoporosis
     Route: 065
  3. APRISO [Concomitant]
     Active Substance: MESALAMINE
     Indication: Colitis ulcerative
  4. AMLODIPINE [Concomitant]
     Active Substance: AMLODIPINE BESYLATE
     Indication: Blood pressure measurement
  5. PROTONIX [Concomitant]
     Active Substance: PANTOPRAZOLE SODIUM
  6. XANAX [Concomitant]
     Active Substance: ALPRAZOLAM
     Route: 048
  7. ASPIRIN [Concomitant]
     Active Substance: ASPIRIN
  8. VITAMINS [Concomitant]
     Active Substance: VITAMINS
     Dosage: 1200 MILLIGRAM, QD
     Route: 048
  9. BENEFIBER [Concomitant]
     Active Substance: STARCH, WHEAT
  10. MIRALAX [Concomitant]
     Active Substance: POLYETHYLENE GLYCOL 3350
  11. CALCIUM CITRATE\VITAMIN D [Concomitant]
     Active Substance: CALCIUM CITRATE\VITAMIN D
     Dosage: 1 DOSAGE FORM, QID
     Route: 048
  12. ZYRTEC [Concomitant]
     Active Substance: CETIRIZINE HYDROCHLORIDE
     Route: 048
  13. AMLODIPINE BESYLATE [Concomitant]
     Active Substance: AMLODIPINE BESYLATE
     Dosage: 2.5 MILLIGRAM, QD
     Route: 048
  14. TYLENOL EXTRA STRENGTH [Concomitant]
     Active Substance: ACETAMINOPHEN
     Route: 048

REACTIONS (25)
  - Osteonecrosis of jaw [Not Recovered/Not Resolved]
  - Pneumonia [Recovered/Resolved]
  - Colitis ulcerative [Unknown]
  - Polyarthritis [Recovered/Resolved]
  - Malaise [Not Recovered/Not Resolved]
  - Candida infection [Not Recovered/Not Resolved]
  - Greater trochanteric pain syndrome [Unknown]
  - Pulmonary mass [Unknown]
  - Musculoskeletal stiffness [Unknown]
  - Pleural effusion [Unknown]
  - Vitamin D deficiency [Unknown]
  - Blood pressure abnormal [Unknown]
  - Endometrial ablation [Unknown]
  - Female sterilisation [Unknown]
  - C-reactive protein increased [Unknown]
  - Arthropathy [Recovered/Resolved]
  - Off label use [Unknown]
  - Arthritis [Recovered/Resolved]
  - Anxiety [Unknown]
  - Herpes zoster [Unknown]
  - Fall [Unknown]
  - Back pain [Unknown]
  - Arthralgia [Recovered/Resolved]
  - Rash [Unknown]
  - Pain in extremity [Unknown]

NARRATIVE: CASE EVENT DATE: 20140522
